FAERS Safety Report 12483794 (Version 4)
Quarter: 2019Q2

REPORT INFORMATION
  Report Type: Report from Study
  Country: DE (occurrence: DE)
  Receive Date: 20160621
  Receipt Date: 20190525
  Transmission Date: 20190711
  Serious: Yes (Death, Hospitalization)
  Sender: FDA-Public Use
  Company Number: PHHY2016DE061178

PATIENT
  Sex: Male

DRUGS (23)
  1. VOTRIENT [Suspect]
     Active Substance: PAZOPANIB HYDROCHLORIDE
     Indication: RENAL CELL CARCINOMA
     Dosage: 400 MG, BID
     Route: 048
     Dates: start: 20140821, end: 20140930
  2. MAGNESIUM VERLA//MAGNESIUM ASPARTATE [Concomitant]
     Indication: PRODUCT USED FOR UNKNOWN INDICATION
     Dosage: UNK UNK, BID (1-0-1)
     Route: 065
     Dates: start: 20150504
  3. METOPROLOL. [Concomitant]
     Active Substance: METOPROLOL
     Indication: PRODUCT USED FOR UNKNOWN INDICATION
     Dosage: 25 MG, QD (1-0-0)
     Route: 065
     Dates: start: 20150628
  4. AFINITOR [Suspect]
     Active Substance: EVEROLIMUS
     Dosage: 10 MG, QD
     Route: 048
     Dates: start: 20150319, end: 20150629
  5. MOVICOL [Concomitant]
     Active Substance: POLYETHYLENE GLYCOL 3350\POTASSIUM CHLORIDE\SODIUM BICARBONATE\SODIUM CHLORIDE
     Indication: PRODUCT USED FOR UNKNOWN INDICATION
     Dosage: 1 DF, QD (1 TABLESPOON 1-0-0)
     Route: 048
     Dates: start: 20150302
  6. GABAPENTIN. [Concomitant]
     Active Substance: GABAPENTIN
     Indication: PRODUCT USED FOR UNKNOWN INDICATION
     Dosage: 300 MG, QD (FIRST DAY)
     Route: 065
  7. DEXAMETHASON [Concomitant]
     Active Substance: DEXAMETHASONE
     Indication: PRODUCT USED FOR UNKNOWN INDICATION
     Dosage: 4 MG, BID
     Route: 065
     Dates: start: 201408
  8. TARGIN [Concomitant]
     Active Substance: NALOXONE HYDROCHLORIDE\OXYCODONE HYDROCHLORIDE
     Indication: PRODUCT USED FOR UNKNOWN INDICATION
     Dosage: 20 MG, BID (1-0-1)
     Route: 065
     Dates: start: 20150504
  9. CALCIUM [Concomitant]
     Active Substance: CALCIUM
     Indication: PRODUCT USED FOR UNKNOWN INDICATION
     Dosage: 500 MG, BID (1-0-1)
     Route: 065
     Dates: start: 20140902
  10. VITAMINA D [Concomitant]
     Indication: PRODUCT USED FOR UNKNOWN INDICATION
     Dosage: 500 MG, BID (1-0-1)
     Route: 065
     Dates: start: 20140902
  11. VOTRIENT [Suspect]
     Active Substance: PAZOPANIB HYDROCHLORIDE
     Dosage: 200 MG, BID
     Route: 048
     Dates: start: 20140930, end: 20141021
  12. PANTOZOL [Concomitant]
     Active Substance: PANTOPRAZOLE SODIUM
     Indication: PRODUCT USED FOR UNKNOWN INDICATION
     Dosage: 40 MG, BID (1-0-0)
     Route: 065
     Dates: start: 20141021
  13. TILIDIN COMP [Concomitant]
     Active Substance: NALOXONE HYDROCHLORIDE\TILIDINE HYDROCHLORIDE
     Indication: PRODUCT USED FOR UNKNOWN INDICATION
     Dosage: 100/8 OT (1-0-1)
     Route: 065
     Dates: start: 20150322
  14. INLYTA [Concomitant]
     Active Substance: AXITINIB
     Indication: PRODUCT USED FOR UNKNOWN INDICATION
     Dosage: 5 MG, BID (1-0-1)
     Route: 065
     Dates: start: 20150630, end: 20150930
  15. AFINITOR [Suspect]
     Active Substance: EVEROLIMUS
     Indication: METASTATIC RENAL CELL CARCINOMA
     Dosage: 10 MG, QD (1-0-0)
     Route: 048
     Dates: start: 20150217, end: 20150310
  16. XGEVA [Concomitant]
     Active Substance: DENOSUMAB
     Indication: PRODUCT USED FOR UNKNOWN INDICATION
     Dosage: 120 MG, (EVERY 4 WEEKS)
     Route: 058
     Dates: start: 20140902, end: 20141028
  17. GABAPENTIN. [Concomitant]
     Active Substance: GABAPENTIN
     Dosage: 300 MG, BID (2ND DAY BID)
     Route: 065
  18. TILIDIN COMP [Concomitant]
     Active Substance: NALOXONE HYDROCHLORIDE\TILIDINE HYDROCHLORIDE
     Dosage: 50/4 OT (1-0-1)
     Route: 065
     Dates: start: 20150322
  19. TRANXILIUM [Concomitant]
     Active Substance: CLORAZEPATE DIPOTASSIUM
     Indication: SEDATION
     Dosage: 10 MG, UNK (FOR SEDATION AT NIGHT))
     Route: 065
     Dates: start: 20150504
  20. AFINITOR [Suspect]
     Active Substance: EVEROLIMUS
     Dosage: 5 MG, QD
     Route: 048
     Dates: start: 20150311, end: 20150318
  21. VOTRIENT [Suspect]
     Active Substance: PAZOPANIB HYDROCHLORIDE
     Dosage: 400 MG, BID
     Route: 048
     Dates: start: 20141022, end: 20141112
  22. LYRICA [Concomitant]
     Active Substance: PREGABALIN
     Indication: PRODUCT USED FOR UNKNOWN INDICATION
     Dosage: 200 MG, (50-0-0- 150 MG)
     Route: 065
     Dates: start: 20150504
  23. LASIX [Concomitant]
     Active Substance: FUROSEMIDE
     Indication: PRODUCT USED FOR UNKNOWN INDICATION
     Dosage: 40 MG, QD (1-0-0)
     Route: 065
     Dates: start: 20150911, end: 20150917

REACTIONS (6)
  - Cholestasis [Unknown]
  - Haemoglobin decreased [Unknown]
  - General physical health deterioration [Recovered/Resolved]
  - Malignant neoplasm progression [Fatal]
  - Renal cell carcinoma [Fatal]
  - Abdominal pain upper [Unknown]

NARRATIVE: CASE EVENT DATE: 20141117
